FAERS Safety Report 5272727-3 (Version None)
Quarter: 2007Q1

REPORT INFORMATION
  Report Type: 
  Country: None (occurrence: None)
  Receive Date: 20070322
  Receipt Date: 20070313
  Transmission Date: 20070707
  Serious: Yes (Life-Threatening, Hospitalization)
  Sender: FDA-Public Use
  Company Number: BE-ROCHE-484679

PATIENT
  Age: 17 Year
  Sex: Female

DRUGS (4)
  1. CELLCEPT [Suspect]
     Indication: GLOMERULONEPHRITIS MEMBRANOUS
     Dosage: INCREASED TO 750 MG DAILY.
     Route: 048
     Dates: start: 20060901, end: 20070125
  2. CELLCEPT [Suspect]
     Dosage: RESTARTED AT 500 MG DAILY.
     Route: 048
  3. CELLCEPT [Suspect]
     Route: 048
     Dates: end: 20061015
  4. CORTICOSTEROID NOS [Concomitant]
     Indication: GLOMERULONEPHRITIS MEMBRANOUS
     Dosage: DRUG REPORTED AS CORTICOIDS. STRENGTH AND FORMULATION REPORTED AS VARIABLE.
     Route: 048
     Dates: start: 20051010

REACTIONS (1)
  - THROMBOTIC MICROANGIOPATHY [None]
